FAERS Safety Report 18958424 (Version 1)
Quarter: 2021Q1

REPORT INFORMATION
  Report Type: Spontaneous
  Country: US (occurrence: US)
  Receive Date: 20210302
  Receipt Date: 20210302
  Transmission Date: 20210420
  Serious: No
  Sender: FDA-Public Use
  Company Number: None

PATIENT
  Age: 71 Year
  Sex: Male
  Weight: 74.25 kg

DRUGS (7)
  1. BAMLANIVIMAB. [Suspect]
     Active Substance: BAMLANIVIMAB
     Indication: COVID-19 TREATMENT
     Dates: start: 20210221, end: 20210221
  2. CARVEDILOL. [Concomitant]
     Active Substance: CARVEDILOL
  3. CLOPEDIGREL [Concomitant]
  4. ATORVASTATIN [Concomitant]
     Active Substance: ATORVASTATIN
  5. VITAMIN C TABLET [Concomitant]
  6. ONE?A?DAY NOS [Concomitant]
     Active Substance: MINERALS\VITAMINS
  7. RANOLAZINE. [Concomitant]
     Active Substance: RANOLAZINE

REACTIONS (4)
  - Back pain [None]
  - Infusion related reaction [None]
  - Pain in extremity [None]
  - Muscle spasms [None]

NARRATIVE: CASE EVENT DATE: 20210221
